FAERS Safety Report 7803494-4 (Version None)
Quarter: 2011Q4

REPORT INFORMATION
  Report Type: 
  Country: None (occurrence: None)
  Receive Date: 20111007
  Receipt Date: 20111004
  Transmission Date: 20120403
  Serious: Yes (Hospitalization)
  Sender: FDA-Public Use
  Company Number: GB-AMGEN-GBRCT2011051275

PATIENT
  Age: 51 Year
  Sex: Male

DRUGS (7)
  1. ACETAMINOPHEN AND CODEINE PHOSPHATE [Concomitant]
     Indication: PAIN
     Dosage: UNK UNK, BID
     Dates: start: 20110718
  2. PYRIDOXINE HCL [Concomitant]
     Indication: PALMAR-PLANTAR ERYTHRODYSAESTHESIA SYNDROME
     Dosage: UNK
     Dates: start: 20110901
  3. EPIRUBICIN [Concomitant]
     Dosage: UNK
     Dates: start: 20110728
  4. CAPECITABINE [Concomitant]
     Dosage: UNK
     Dates: start: 20110728, end: 20110901
  5. PANITUMUMAB [Suspect]
     Indication: GASTROOESOPHAGEAL CANCER
     Dosage: UNK
     Dates: start: 20110728
  6. OXALIPLATIN [Concomitant]
     Dosage: UNK
     Dates: start: 20110728
  7. OMEPRAZOLE [Concomitant]
     Indication: GASTROOESOPHAGEAL REFLUX DISEASE
     Dosage: 20 MG, QD
     Dates: start: 20060101

REACTIONS (1)
  - INFECTION [None]
